FAERS Safety Report 13146574 (Version 2)
Quarter: 2017Q1

REPORT INFORMATION
  Report Type: Spontaneous
  Country: US (occurrence: US)
  Receive Date: 20170125
  Receipt Date: 20170130
  Transmission Date: 20170428
  Serious: Yes (Hospitalization, Other)
  Sender: FDA-Public Use
  Company Number: US-CELGENEUS-USA-2017015172

PATIENT
  Age: 81 Year
  Sex: Female

DRUGS (1)
  1. REVLIMID [Suspect]
     Active Substance: LENALIDOMIDE
     Indication: PLASMA CELL MYELOMA
     Dosage: 10 MILLIGRAM
     Route: 048
     Dates: start: 20161227, end: 20170106

REACTIONS (5)
  - Hallucination [Unknown]
  - Diarrhoea [Unknown]
  - Dehydration [Unknown]
  - Blood potassium decreased [Unknown]
  - Bedridden [Unknown]

NARRATIVE: CASE EVENT DATE: 20170106
